FAERS Safety Report 11058933 (Version 1)
Quarter: 2015Q2

REPORT INFORMATION
  Report Type: Spontaneous
  Country: US (occurrence: None)
  Receive Date: 20150422
  Receipt Date: 20150422
  Transmission Date: 20150821
  Serious: Yes (Disabling)
  Sender: FDA-Public Use
  Company Number: None

PATIENT
  Age: 16 Year
  Sex: Female
  Weight: 63.05 kg

DRUGS (2)
  1. IC CLINDAMYCIN HCL 300 MG [Suspect]
     Active Substance: CLINDAMYCIN HYDROCHLORIDE
     Indication: DRUG HYPERSENSITIVITY
     Dosage: 1 CAPSULE EVERY 8 HR
     Route: 048
     Dates: start: 20150416, end: 20150417
  2. IC CLINDAMYCIN HCL 300 MG [Suspect]
     Active Substance: CLINDAMYCIN HYDROCHLORIDE
     Indication: WISDOM TEETH REMOVAL
     Dosage: 1 CAPSULE EVERY 8 HR
     Route: 048
     Dates: start: 20150416, end: 20150417

REACTIONS (4)
  - Feeding disorder [None]
  - Oesophageal disorder [None]
  - Fluid intake reduced [None]
  - Chest pain [None]

NARRATIVE: CASE EVENT DATE: 20150417
